FAERS Safety Report 5414931-7 (Version None)
Quarter: 2007Q3

REPORT INFORMATION
  Report Type: 
  Country: None (occurrence: None)
  Receive Date: 20070813
  Receipt Date: 20070813
  Transmission Date: 20080115
  Serious: Yes (Life-Threatening)
  Sender: FDA-Public Use
  Company Number: None

PATIENT
  Sex: Female
  Weight: 58.9676 kg

DRUGS (4)
  1. JOHNSON'S BABY SHAMPOO [Suspect]
     Indication: HYPERAESTHESIA
     Dosage: 15 FL OZ 444ML
     Dates: start: 20070401
  2. JOHNSON'S BABY SHAMPOO [Suspect]
     Indication: HYPERAESTHESIA
     Dosage: 15 FL OZ 444ML
     Dates: start: 20070601
  3. JOHNSON'S BABY SHAMPOO [Suspect]
     Indication: HYPERAESTHESIA
     Dosage: 15 FL OZ 444ML
     Dates: start: 20070731
  4. JOHNSON'S BABY TALCUM POWDER [Suspect]

REACTIONS (2)
  - ALOPECIA [None]
  - HEADACHE [None]
